FAERS Safety Report 5245872-6 (Version None)
Quarter: 2007Q1

REPORT INFORMATION
  Report Type: 
  Country: None (occurrence: None)
  Receive Date: 20070223
  Receipt Date: 20070214
  Transmission Date: 20070707
  Serious: Yes (Life-Threatening)
  Sender: FDA-Public Use
  Company Number: FR-ABBOTT-07P-056-0359207-00

PATIENT
  Age: 60 Year
  Sex: Female

DRUGS (6)
  1. KALETRA [Suspect]
     Indication: HIV INFECTION
     Route: 048
  2. ALDACTAZINE [Suspect]
     Indication: HIV INFECTION
     Route: 048
  3. DIDANOSINE [Suspect]
     Indication: HIV INFECTION
     Route: 048
  4. LAMIVUDINE [Suspect]
     Indication: HIV INFECTION
     Route: 048
  5. CLOPIDOGREL [Suspect]
     Indication: ACUTE MYOCARDIAL INFARCTION
     Route: 048
  6. CARVEDILOL [Suspect]
     Indication: ARRHYTHMIA SUPRAVENTRICULAR
     Route: 048

REACTIONS (9)
  - ACINETOBACTER BACTERAEMIA [None]
  - ACUTE MYOCARDIAL INFARCTION [None]
  - ACUTE PULMONARY OEDEMA [None]
  - ARRHYTHMIA SUPRAVENTRICULAR [None]
  - ASPHYXIA [None]
  - ENTEROCOCCAL INFECTION [None]
  - LEFT VENTRICULAR FAILURE [None]
  - NUCLEAR MAGNETIC RESONANCE IMAGING BRAIN ABNORMAL [None]
  - PYREXIA [None]
